FAERS Safety Report 7770259-1 (Version None)
Quarter: 2011Q3

REPORT INFORMATION
  Report Type: 
  Country: None (occurrence: None)
  Receive Date: 20110922
  Receipt Date: 20110615
  Transmission Date: 20111222
  Serious: No
  Sender: FDA-Public Use
  Company Number: US-ASTRAZENECA-2011SE36409

PATIENT
  Age: 47 Year
  Sex: Male
  Weight: 68 kg

DRUGS (6)
  1. CLONAZEPAM [Concomitant]
  2. TRAZODONE HCL [Concomitant]
  3. SEROQUEL [Suspect]
     Dosage: 200 IN AM, 200MG IN AFTERNOON,300MG AT NIGHT
     Route: 048
  4. METOPROLOL TARTRATE [Concomitant]
  5. METHADONE HCL [Concomitant]
  6. SEROQUEL [Suspect]
     Route: 048

REACTIONS (2)
  - DEPRESSION [None]
  - INAPPROPRIATE SCHEDULE OF DRUG ADMINISTRATION [None]
